FAERS Safety Report 18642987 (Version 1)
Quarter: 2020Q4

REPORT INFORMATION
  Report Type: Spontaneous
  Country: US (occurrence: US)
  Receive Date: 20201220
  Receipt Date: 20201220
  Transmission Date: 20210114
  Serious: Yes (Other)
  Sender: FDA-Public Use
  Company Number: None

PATIENT
  Age: 73 Year
  Sex: Male
  Weight: 56.25 kg

DRUGS (8)
  1. PRAVASTATIN. [Concomitant]
     Active Substance: PRAVASTATIN
  2. ASPIRIN. [Concomitant]
     Active Substance: ASPIRIN
  3. NIACIN. [Concomitant]
     Active Substance: NIACIN
  4. TRAZODONE [Concomitant]
     Active Substance: TRAZODONE HYDROCHLORIDE
  5. BUPROPION XL [Concomitant]
     Active Substance: BUPROPION
  6. VITAMIN D [Concomitant]
     Active Substance: VITAMIN D NOS
  7. MULTIVITAMIN WITH IRON [Concomitant]
     Active Substance: IRON\VITAMINS
  8. MESALAMINE DELAYED-RELEASE TABLETS   1.2 G [Suspect]
     Active Substance: MESALAMINE
     Indication: COLITIS ULCERATIVE
     Dosage: ?          QUANTITY:4 TABLET(S);?
     Route: 048
     Dates: start: 20200406

REACTIONS (2)
  - Colitis ulcerative [None]
  - Product substitution issue [None]

NARRATIVE: CASE EVENT DATE: 20200608
